FAERS Safety Report 8494936-2 (Version None)
Quarter: 2012Q3

REPORT INFORMATION
  Report Type: 
  Country: None (occurrence: None)
  Receive Date: 20120709
  Receipt Date: 20120707
  Transmission Date: 20120928
  Serious: Yes (Other)
  Sender: FDA-Public Use
  Company Number: US-PFIZER INC-2012162764

PATIENT
  Sex: Male
  Weight: 95.238 kg

DRUGS (3)
  1. CHANTIX [Suspect]
     Dosage: 1 MG, 2X/DAY
     Route: 048
     Dates: start: 20120101, end: 20120101
  2. CHANTIX [Suspect]
     Indication: SMOKING CESSATION THERAPY
     Dosage: 0.5 MG, UNK
     Route: 048
     Dates: start: 20120401, end: 20120101
  3. SUBOXONE [Concomitant]
     Indication: ARTHRITIS
     Dosage: 8/2 MG DAILY

REACTIONS (8)
  - PSYCHIATRIC SYMPTOM [None]
  - VISUAL ACUITY REDUCED [None]
  - LIP SWELLING [None]
  - FEELING ABNORMAL [None]
  - BENIGN NEOPLASM OF THYROID GLAND [None]
  - TONGUE BLISTERING [None]
  - THINKING ABNORMAL [None]
  - ANGER [None]
